FAERS Safety Report 5895598-0 (Version None)
Quarter: 2008Q3

REPORT INFORMATION
  Report Type: 
  Country: None (occurrence: None)
  Receive Date: 20080924
  Receipt Date: 20080320
  Transmission Date: 20090109
  Serious: Yes (Other)
  Sender: FDA-Public Use
  Company Number: US-ASTRAZENECA-2006UW08483

PATIENT
  Age: 31 Year
  Sex: Male
  Weight: 52.2 kg

DRUGS (5)
  1. SEROQUEL [Suspect]
     Indication: SLEEP DISORDER
     Dosage: 25-200 MG
     Route: 048
     Dates: start: 20050330, end: 20050922
  2. SEROQUEL [Suspect]
     Indication: DEPRESSION
     Dosage: 25-200 MG
     Route: 048
     Dates: start: 20050330, end: 20050922
  3. MIRTAZAPINE [Concomitant]
  4. MIRTAZAPINE [Concomitant]
  5. ZOLOFT [Concomitant]

REACTIONS (3)
  - DIABETES MELLITUS [None]
  - HYPOTHYROIDISM [None]
  - PANCREATITIS [None]
